FAERS Safety Report 14475394 (Version 1)
Quarter: 2018Q1

REPORT INFORMATION
  Report Type: Spontaneous
  Country: US (occurrence: US)
  Receive Date: 20180131
  Receipt Date: 20180131
  Transmission Date: 20180509
  Serious: Yes (Hospitalization)
  Sender: FDA-Public Use
  Company Number: None

PATIENT
  Age: 45 Year
  Sex: Female

DRUGS (16)
  1. SIROLIMUS. [Suspect]
     Active Substance: SIROLIMUS
     Indication: HYPOKALAEMIA
     Route: 048
     Dates: start: 20160816
  2. TACROLIMUS. [Suspect]
     Active Substance: TACROLIMUS
     Indication: HYPOKALAEMIA
     Route: 048
     Dates: start: 20160816
  3. SMZ-TMP [Concomitant]
     Active Substance: SULFAMETHOXAZOLE\TRIMETHOPRIM
  4. LEVETIRAC [Concomitant]
  5. URSODIOL. [Concomitant]
     Active Substance: URSODIOL
  6. PREDNISONE. [Concomitant]
     Active Substance: PREDNISONE
  7. LEVETIRACETA [Concomitant]
  8. CALCITRIOL. [Concomitant]
     Active Substance: CALCITRIOL
  9. WARFARIN [Concomitant]
     Active Substance: WARFARIN
  10. AMLODIPINE [Concomitant]
     Active Substance: AMLODIPINE BESYLATE
  11. GABAPENTIN. [Concomitant]
     Active Substance: GABAPENTIN
  12. HYDRALAZINE [Concomitant]
     Active Substance: HYDRALAZINE HYDROCHLORIDE
  13. OLANZAPINE. [Concomitant]
     Active Substance: OLANZAPINE
  14. SODIUM BICAR [Concomitant]
  15. POT CL MICRO [Concomitant]
  16. METOCLOPRAM [Concomitant]
     Active Substance: METOCLOPRAMIDE

REACTIONS (3)
  - Pneumonia [None]
  - Blood culture positive [None]
  - Small intestinal obstruction [None]

NARRATIVE: CASE EVENT DATE: 20171204
